FAERS Safety Report 5212968-4 (Version None)
Quarter: 2007Q1

REPORT INFORMATION
  Report Type: 
  Country: None (occurrence: None)
  Receive Date: 20070117
  Receipt Date: 20070104
  Transmission Date: 20070707
  Serious: Yes (Hospitalization)
  Sender: FDA-Public Use
  Company Number: 2006BI018905

PATIENT
  Age: 45 Year
  Sex: Female
  Weight: 127.0072 kg

DRUGS (1)
  1. NATALIZUMAB [Suspect]
     Indication: MULTIPLE SCLEROSIS
     Dosage: 300 MG;QM;IV
     Route: 042
     Dates: start: 20061120

REACTIONS (7)
  - ANKLE FRACTURE [None]
  - BLOOD BILIRUBIN INCREASED [None]
  - FALL [None]
  - FIBULA FRACTURE [None]
  - FOOT FRACTURE [None]
  - HYPOKALAEMIA [None]
  - JAUNDICE [None]
